FAERS Safety Report 6687405-3 (Version None)
Quarter: 2010Q2

REPORT INFORMATION
  Report Type: 
  Country: None (occurrence: None)
  Receive Date: 20100416
  Receipt Date: 20100416
  Transmission Date: 20101027
  Serious: Yes (Other)
  Sender: FDA-Public Use
  Company Number: None

PATIENT
  Age: 46 Year
  Sex: Female
  Weight: 78.0187 kg

DRUGS (2)
  1. LYRICA [Suspect]
     Indication: FIBROSIS
     Dosage: 75 MG TID PO
     Route: 048
     Dates: start: 20100215, end: 20100331
  2. LYRICA [Suspect]
     Indication: SURGICAL FAILURE
     Dosage: 75 MG TID PO
     Route: 048
     Dates: start: 20100215, end: 20100331

REACTIONS (8)
  - DEPRESSION [None]
  - DIARRHOEA [None]
  - DRUG WITHDRAWAL SYNDROME [None]
  - INSOMNIA [None]
  - NAUSEA [None]
  - PARANOIA [None]
  - SUICIDAL IDEATION [None]
  - TREMOR [None]
